FAERS Safety Report 8862385 (Version 1)
Quarter: 2012Q4

REPORT INFORMATION
  Report Type: 
  Country: IT (occurrence: IT)
  Receive Date: 20121026
  Receipt Date: 20121026
  Transmission Date: 20130627
  Serious: Yes (Life-Threatening)
  Sender: FDA-Public Use
  Company Number: IT-PFIZER INC-2012265439

PATIENT
  Age: 63 Year
  Sex: Female

DRUGS (4)
  1. ATENOLOL [Suspect]
     Dosage: UNK
  2. RAMIPRIL [Suspect]
     Dosage: UNK
     Route: 048
  3. ASA [Suspect]
     Dosage: UNK
  4. ALLOPURINOL [Suspect]
     Dosage: 300 mg, daily

REACTIONS (1)
  - Drug reaction with eosinophilia and systemic symptoms [Unknown]
